FAERS Safety Report 23021175 (Version 2)
Quarter: 2023Q4

REPORT INFORMATION
  Report Type: Spontaneous
  Country: GB (occurrence: GB)
  Receive Date: 20231003
  Receipt Date: 20231031
  Transmission Date: 20240109
  Serious: Yes (Other)
  Sender: FDA-Public Use
  Company Number: GB-MHRA-MED-202309260850364770-MKYVF

PATIENT
  Age: 44 Year
  Sex: Male
  Weight: 62 kg

DRUGS (2)
  1. ABILIFY MAINTENA [Suspect]
     Active Substance: ARIPIPRAZOLE
     Indication: Product used for unknown indication
     Dosage: UNK
     Route: 065
     Dates: start: 20230909
  2. ARIPIPRAZOLE [Suspect]
     Active Substance: ARIPIPRAZOLE
     Indication: Product used for unknown indication
     Dosage: UNK
     Route: 065

REACTIONS (8)
  - Urine output fluctuation [Recovered/Resolved with Sequelae]
  - Disturbance in attention [Unknown]
  - Urinary incontinence [Recovered/Resolved with Sequelae]
  - Erectile dysfunction [Unknown]
  - Insomnia [Not Recovered/Not Resolved]
  - Akathisia [Unknown]
  - Dry mouth [Unknown]
  - Medication error [Unknown]

NARRATIVE: CASE EVENT DATE: 20230910
